FAERS Safety Report 4653601-X (Version None)
Quarter: 2005Q2

REPORT INFORMATION
  Report Type: 
  Country: None (occurrence: None)
  Receive Date: 20050505
  Receipt Date: 20050425
  Transmission Date: 20051028
  Serious: Yes (Hospitalization)
  Sender: FDA-Public Use
  Company Number: FR-ROCHE-402747

PATIENT
  Age: 31 Year
  Sex: Female

DRUGS (6)
  1. VESANOID [Suspect]
     Route: 048
     Dates: start: 20050125, end: 20050224
  2. NORDETTE-21 [Suspect]
     Indication: DRUG USE FOR UNKNOWN INDICATION
     Route: 048
  3. CERUBIDINE [Concomitant]
     Route: 042
     Dates: start: 20050125, end: 20050127
  4. FASTURTEK [Concomitant]
     Route: 042
     Dates: start: 20050125, end: 20050126
  5. ARACYTINE [Concomitant]
     Dosage: FORMULATION REPORTED AS LYOPHILISED.
     Route: 042
     Dates: start: 20050125, end: 20050201
  6. DEXAMETHASONE [Concomitant]
     Route: 048
     Dates: start: 20050201, end: 20050216

REACTIONS (4)
  - ALANINE AMINOTRANSFERASE INCREASED [None]
  - ASPARTATE AMINOTRANSFERASE INCREASED [None]
  - GAMMA-GLUTAMYLTRANSFERASE INCREASED [None]
  - HYPERBILIRUBINAEMIA [None]
